FAERS Safety Report 8096182 (Version 5)
Quarter: 2013Q4

REPORT INFORMATION
  Report Type: Spontaneous
  Country: US (occurrence: US)
  Receive Date: 20110818
  Receipt Date: 20131226
  Transmission Date: 20140711
  Serious: Yes (Other)
  Sender: FDA-Public Use
  Company Number: PHEH2011US00877

PATIENT
  Age: 54 Year
  Sex: Female

DRUGS (16)
  1. TASIGNA [Suspect]
     Indication: CHRONIC MYELOID LEUKAEMIA
     Dosage: 300 MG, BID
     Route: 048
     Dates: start: 20110415
  2. KCL [Concomitant]
  3. HYDROCHLOROTHIAZIDE [Concomitant]
  4. VIT B-COMPLEX (CALCIUM PANTOTHENATE, NICOTINAMIDE, PYRIDOXINE HYDROCHLORIDE, RIBOFLAVIN, THIAMINE HYDROCHLORIDE) [Concomitant]
     Dosage: 100 MG,
  5. FOLIC ACID [Concomitant]
  6. ESTER-C (CALCIUM ASCORBATE) [Concomitant]
  7. CALCIUM [Concomitant]
  8. ALDACTONE (SPIRONOLACTONE) [Concomitant]
  9. ADVAIR DISKUS (FLUTICASONE PROPIONATE, SALMETEROL XINAFOATE) [Concomitant]
  10. AVANDAMET (METFORMIN HYDROCHLORIDE, ROSIGLITAZONE MALEATE) [Concomitant]
  11. SULFONYL UREA DERIVATIVES [Concomitant]
  12. METFORMIN [Concomitant]
  13. INSULIN [Concomitant]
  14. ALPHA GLUCOSIDASE INHIBITORS [Concomitant]
  15. REPAGLINIDE [Concomitant]
  16. TROGLITAZONE [Concomitant]

REACTIONS (5)
  - Drug-induced liver injury [Unknown]
  - Transaminases increased [Recovering/Resolving]
  - Nausea [Unknown]
  - Drug intolerance [Recovered/Resolved]
  - Drug-induced liver injury [None]
